FAERS Safety Report 9863241 (Version 1)
Quarter: 2014Q1

REPORT INFORMATION
  Report Type: Spontaneous
  Country: None (occurrence: US)
  Receive Date: 20140203
  Receipt Date: 20140203
  Transmission Date: 20141002
  Serious: No
  Sender: FDA-Public Use
  Company Number: US-TARO-2013P1019017

PATIENT
  Sex: Female

DRUGS (1)
  1. MOMETASONE FUROATE [Suspect]
     Dates: start: 201108, end: 201308

REACTIONS (3)
  - Blister [Unknown]
  - Erythema [Unknown]
  - Thermal burn [Unknown]
